FAERS Safety Report 22188272 (Version 2)
Quarter: 2023Q2

REPORT INFORMATION
  Report Type: Report from Study
  Country: BE (occurrence: BE)
  Receive Date: 20230408
  Receipt Date: 20230425
  Transmission Date: 20230722
  Serious: Yes (Life-Threatening, Hospitalization, Other)
  Sender: FDA-Public Use
  Company Number: BE-AMGEN-BELNI2023059265

PATIENT
  Age: 77 Year
  Sex: Female

DRUGS (20)
  1. SOTORASIB [Suspect]
     Active Substance: SOTORASIB
     Indication: Non-small cell lung cancer
     Dosage: 960 MILLIGRAM, QD
     Route: 048
     Dates: start: 20221122
  2. ALLOPURINOL [Concomitant]
     Active Substance: ALLOPURINOL
     Indication: Cerebrovascular accident
     Dosage: 100 MILLIGRAM, QD
     Route: 048
     Dates: start: 20160620
  3. CLOPIDOGREL [Concomitant]
     Active Substance: CLOPIDOGREL BISULFATE
     Indication: Cerebrovascular accident
     Dosage: 75 MILLIGRAM, QD
     Route: 048
     Dates: start: 20230118
  4. IPRATROPIUM [Concomitant]
     Active Substance: IPRATROPIUM
     Dosage: 20 MICROGRAM, QD
     Dates: start: 20020813
  5. FENOTEROL [Concomitant]
     Active Substance: FENOTEROL
     Dosage: 50 MICROGRAM, QD
     Dates: start: 20020813
  6. PREGABALIN [Concomitant]
     Active Substance: PREGABALIN
     Dosage: 75 MILLIGRAM, QD
     Route: 048
     Dates: start: 20200411
  7. Magnetop [Concomitant]
     Dosage: 450 MILLIGRAM, QD
     Route: 048
     Dates: start: 20220511
  8. METFORMIN HYDROCHLORIDE [Concomitant]
     Active Substance: METFORMIN HYDROCHLORIDE
     Indication: Cerebrovascular accident
     Dosage: 500 MILLIGRAM, QD
     Route: 048
     Dates: start: 20200411
  9. CALCIUM [Concomitant]
     Active Substance: CALCIUM
     Indication: Cerebrovascular accident
     Dosage: 1000 MILLIGRAM, QD
     Route: 048
     Dates: start: 20200521
  10. CHOLECALCIFEROL [Concomitant]
     Active Substance: CHOLECALCIFEROL
     Indication: Cerebrovascular accident
     Dosage: 800 MILLIGRAM, QD
     Route: 048
     Dates: start: 20200521
  11. ROSUVASTATIN [Concomitant]
     Active Substance: ROSUVASTATIN
     Indication: Cerebrovascular accident
     Dosage: 20 MILLIGRAM, QD
     Route: 048
     Dates: start: 20220508
  12. EZETIMIBE [Concomitant]
     Active Substance: EZETIMIBE
     Dosage: 10 MILLIGRAM, QD
     Route: 048
     Dates: start: 20220508
  13. LINAGLIPTIN [Concomitant]
     Active Substance: LINAGLIPTIN
     Indication: Cerebrovascular accident
     Dosage: 5 MILLIGRAM, QD
     Route: 048
     Dates: start: 20220511
  14. CYANOCOBALAMIN [Concomitant]
     Active Substance: CYANOCOBALAMIN
     Dosage: 0.5 MILLIGRAM, QD
     Route: 048
     Dates: start: 20220511
  15. FOLIC ACID [Concomitant]
     Active Substance: FOLIC ACID
     Dosage: 0.8 MILLIGRAM, QD
     Route: 048
     Dates: start: 20220511
  16. PYRIDOXINE [Concomitant]
     Active Substance: PYRIDOXINE
     Dosage: 3 MILLIGRAM, QD
     Dates: start: 20220511
  17. BECLOMETHASONE DIPROPIONATE [Concomitant]
     Active Substance: BECLOMETHASONE DIPROPIONATE
     Dosage: 87 MICROGRAM, BID
     Dates: start: 20200411
  18. FORMOTEROL [Concomitant]
     Active Substance: FORMOTEROL
     Dosage: 5 MICROGRAM, BID
     Dates: start: 20200411
  19. GLYCOPYRRONIUM [Concomitant]
     Active Substance: GLYCOPYRRONIUM
     Dosage: 9 MICROGRAM, BID
     Dates: start: 20200411
  20. DENOSUMAB [Concomitant]
     Active Substance: DENOSUMAB
     Indication: Cerebrovascular accident
     Dosage: 120 MILLIGRAM, Q4WK
     Route: 058
     Dates: start: 20200521

REACTIONS (1)
  - Cerebrovascular accident [Recovered/Resolved]

NARRATIVE: CASE EVENT DATE: 20230401
